FAERS Safety Report 19445098 (Version 2)
Quarter: 2021Q3

REPORT INFORMATION
  Report Type: Spontaneous
  Country: DE (occurrence: DE)
  Receive Date: 20210622
  Receipt Date: 20210719
  Transmission Date: 20211014
  Serious: Yes (Other)
  Sender: FDA-Public Use
  Company Number: DE-AUROBINDO-AUR-APL-2021-025692

PATIENT
  Age: 73 Year
  Sex: Male

DRUGS (3)
  1. LEVETIRACETAM. [Suspect]
     Active Substance: LEVETIRACETAM
     Indication: SEIZURE
     Dosage: 1200 MILLIGRAM (1200?0?1200)
     Route: 065
  2. APYDAN EXTENT [Suspect]
     Active Substance: OXCARBAZEPINE
     Dosage: 900 MILLIGRAM, ONCE A DAY(300?0?600 )
     Route: 065
     Dates: start: 202106
  3. APYDAN EXTENT [Suspect]
     Active Substance: OXCARBAZEPINE
     Indication: SEIZURE
     Dosage: 600 MILLIGRAM, TWO TIMES A DAY ((600?0?600))
     Route: 065

REACTIONS (4)
  - Fatigue [Unknown]
  - Therapeutic product effect incomplete [Unknown]
  - Diplopia [Unknown]
  - Libido decreased [Not Recovered/Not Resolved]
